FAERS Safety Report 7267341-4 (Version None)
Quarter: 2011Q1

REPORT INFORMATION
  Report Type: 
  Country: None (occurrence: None)
  Receive Date: 20110201
  Receipt Date: 20100810
  Transmission Date: 20110831
  Serious: No
  Sender: FDA-Public Use
  Company Number: A0851995A

PATIENT
  Age: 60 Year
  Sex: Male

DRUGS (6)
  1. STOOL SOFTENERS [Concomitant]
  2. HYDROCODONE [Concomitant]
  3. ALENDROS [Concomitant]
  4. ARIXTRA [Suspect]
     Indication: DEEP VEIN THROMBOSIS
     Dosage: 7.5MG PER DAY
     Route: 058
     Dates: start: 20100201
  5. K-DUR [Concomitant]
  6. HYDROCHLOROTHIAZIDE [Concomitant]

REACTIONS (4)
  - LACERATION [None]
  - PRODUCT QUALITY ISSUE [None]
  - NEEDLE ISSUE [None]
  - INJECTION SITE PAIN [None]
